FAERS Safety Report 4658408-5 (Version None)
Quarter: 2005Q2

REPORT INFORMATION
  Report Type: 
  Country: None (occurrence: None)
  Receive Date: 20050509
  Receipt Date: 20050428
  Transmission Date: 20051028
  Serious: No
  Sender: FDA-Public Use
  Company Number: 2005UW06186

PATIENT
  Age: 86 Year
  Sex: Female

DRUGS (6)
  1. CRESTOR [Suspect]
     Dosage: 10 MG QD PO
     Route: 048
     Dates: start: 20040421, end: 20050413
  2. LISINOPRIL [Concomitant]
  3. AVANDAMET [Concomitant]
  4. PREVACID [Concomitant]
  5. FLAGYL [Concomitant]
  6. TETRACYCLINE [Concomitant]

REACTIONS (4)
  - BLOOD CREATININE INCREASED [None]
  - GASTROENTERITIS HELICOBACTER [None]
  - INFLUENZA LIKE ILLNESS [None]
  - RHABDOMYOLYSIS [None]
